FAERS Safety Report 7407561-9 (Version None)
Quarter: 2011Q2

REPORT INFORMATION
  Report Type: 
  Country: None (occurrence: None)
  Receive Date: 20110406
  Receipt Date: 20110406
  Transmission Date: 20111010
  Serious: Yes (Hospitalization)
  Sender: FDA-Public Use
  Company Number: None

PATIENT
  Sex: Female
  Weight: 55.23 kg

DRUGS (4)
  1. METHADONE [Concomitant]
  2. OXYCONTIN [Concomitant]
  3. TAXOL [Suspect]
     Dosage: 210 MG
     Dates: end: 20110309
  4. PERCOCET [Concomitant]

REACTIONS (15)
  - DYSURIA [None]
  - FALL [None]
  - DIZZINESS [None]
  - RADIUS FRACTURE [None]
  - HEAD INJURY [None]
  - FRACTURE DISPLACEMENT [None]
  - POST-TRAUMATIC PAIN [None]
  - COMMINUTED FRACTURE [None]
  - TREMOR [None]
  - OEDEMA PERIPHERAL [None]
  - FATIGUE [None]
  - GAIT DISTURBANCE [None]
  - HYPOAESTHESIA [None]
  - PARAESTHESIA [None]
  - BLISTER [None]
